FAERS Safety Report 21384479 (Version 3)
Quarter: 2024Q2

REPORT INFORMATION
  Report Type: Report from Study
  Country: BR (occurrence: BR)
  Receive Date: 20220928
  Receipt Date: 20240411
  Transmission Date: 20240716
  Serious: No
  Sender: FDA-Public Use
  Company Number: BR-NOVARTISPH-NVSC2022BR218880

PATIENT
  Age: 42 Year
  Sex: Female

DRUGS (1)
  1. COSENTYX [Suspect]
     Active Substance: SECUKINUMAB
     Indication: Ankylosing spondylitis
     Dosage: UNK
     Route: 065
     Dates: start: 201809, end: 202206

REACTIONS (8)
  - Pain [Not Recovered/Not Resolved]
  - Arthralgia [Unknown]
  - Chest pain [Unknown]
  - Drug ineffective [Unknown]
  - Disease progression [Not Recovered/Not Resolved]
  - Gait disturbance [Not Recovered/Not Resolved]
  - Insomnia [Not Recovered/Not Resolved]
  - Adverse drug reaction [Unknown]

NARRATIVE: CASE EVENT DATE: 20220601
